FAERS Safety Report 8574641-4 (Version None)
Quarter: 2012Q3

REPORT INFORMATION
  Report Type: 
  Country: None (occurrence: None)
  Receive Date: 20120807
  Receipt Date: 20120803
  Transmission Date: 20120928
  Serious: Yes (Other)
  Sender: FDA-Public Use
  Company Number: IE-AMGEN-IRLSP2012026649

PATIENT
  Age: 70 Year
  Sex: Female
  Weight: 44.45 kg

DRUGS (6)
  1. CALCICHEW D3 [Concomitant]
     Dosage: UNK UNK, BID
  2. ZIMOVANE [Concomitant]
  3. RALOXIFENE HYDROCHLORIDE [Concomitant]
     Dosage: UNK UNK, QD
  4. ACETAMINOPHEN AND TRAMADOL HCL [Concomitant]
     Dosage: UNK UNK, TID
  5. XANAX [Concomitant]
     Dosage: UNK UNK, QD
  6. PROLIA [Suspect]
     Indication: OSTEOPOROSIS POSTMENOPAUSAL
     Dosage: 60 MG, QMO
     Route: 058
     Dates: start: 20120327

REACTIONS (3)
  - HEADACHE [None]
  - CONSTIPATION [None]
  - PAIN IN JAW [None]
